FAERS Safety Report 7421102-1 (Version None)
Quarter: 2011Q2

REPORT INFORMATION
  Report Type: 
  Country: None (occurrence: None)
  Receive Date: 20110418
  Receipt Date: 20110403
  Transmission Date: 20111010
  Serious: Yes (Hospitalization)
  Sender: FDA-Public Use
  Company Number: US-BAYER-201037055NA

PATIENT
  Age: 37 Year
  Sex: Female
  Weight: 74.83 kg

DRUGS (11)
  1. OMEPRAZOLE [Concomitant]
  2. NEXIUM [Concomitant]
  3. YAZ [Suspect]
     Indication: ACNE
  4. CETIRIZINE HCL [Concomitant]
  5. XANAX [Concomitant]
  6. YAZ [Suspect]
     Indication: ORAL CONTRACEPTION
     Dosage: UNK UNK, UNK
     Route: 048
     Dates: start: 20080201, end: 20090701
  7. MAXALT [Concomitant]
  8. AMITIZA [Concomitant]
  9. PERCOCET [Concomitant]
  10. CYCLOBENAZPR [Concomitant]
  11. LYRICA [Concomitant]

REACTIONS (4)
  - DEEP VEIN THROMBOSIS [None]
  - PAIN [None]
  - PULMONARY EMBOLISM [None]
  - EMOTIONAL DISTRESS [None]
